FAERS Safety Report 6792028-1 (Version None)
Quarter: 2010Q2

REPORT INFORMATION
  Report Type: 
  Country: None (occurrence: None)
  Receive Date: 20100624
  Receipt Date: 20080719
  Transmission Date: 20101027
  Serious: No
  Sender: FDA-Public Use
  Company Number: US-PFIZER INC-2008060727

PATIENT
  Sex: Female
  Weight: 68.181 kg

DRUGS (10)
  1. CADUET [Suspect]
     Indication: BLOOD CHOLESTEROL INCREASED
  2. CADUET [Suspect]
     Indication: HYPERTENSION
  3. GLUCOPHAGE [Suspect]
  4. PREDNISONE [Suspect]
     Indication: RASH
  5. PLAVIX [Concomitant]
  6. FENOFIBRATE [Concomitant]
  7. NADOLOL [Concomitant]
  8. COZAAR [Concomitant]
  9. GLIMEPIRIDE [Concomitant]
  10. FOSAMAX [Concomitant]

REACTIONS (4)
  - ASTHENIA [None]
  - DIARRHOEA [None]
  - NAUSEA [None]
  - RASH [None]
